FAERS Safety Report 9802579 (Version 1)
Quarter: 2014Q1

REPORT INFORMATION
  Report Type: Spontaneous
  Country: ES (occurrence: ES)
  Receive Date: 20140108
  Receipt Date: 20140108
  Transmission Date: 20141002
  Serious: Yes (Other)
  Sender: FDA-Public Use
  Company Number: ES-KOWA-2013S1002252

PATIENT
  Age: 79 Year
  Sex: Female
  Weight: 47 kg

DRUGS (1)
  1. ALIPZA [Suspect]
     Indication: DYSLIPIDAEMIA
     Route: 048
     Dates: start: 20131016, end: 20131112

REACTIONS (3)
  - Malaise [Recovered/Resolved]
  - Dizziness [Recovered/Resolved]
  - Balance disorder [Recovered/Resolved]
